FAERS Safety Report 21320820 (Version 2)
Quarter: 2022Q4

REPORT INFORMATION
  Report Type: Spontaneous
  Country: US (occurrence: US)
  Receive Date: 20220912
  Receipt Date: 20221003
  Transmission Date: 20230112
  Serious: Yes (Other)
  Sender: FDA-Public Use
  Company Number: US-BRISTOL-MYERS SQUIBB COMPANY-2022-103001

PATIENT
  Age: 73 Year
  Sex: Female

DRUGS (1)
  1. REVLIMID [Suspect]
     Active Substance: LENALIDOMIDE
     Indication: B-cell lymphoma
     Dosage: TAKE 1 CAPSULE BY MOUTH DAILY FOR 21 DAYS, FOLLOWED BY 7 DAYS OFF
     Route: 048

REACTIONS (3)
  - Drug ineffective [Unknown]
  - Pruritus [Recovered/Resolved]
  - Muscle spasms [Unknown]
